FAERS Safety Report 7021227-9 (Version None)
Quarter: 2010Q3

REPORT INFORMATION
  Report Type: 
  Country: None (occurrence: None)
  Receive Date: 20100929
  Receipt Date: 20091207
  Transmission Date: 20110219
  Serious: No
  Sender: FDA-Public Use
  Company Number: US-PFIZER INC-2009301910

PATIENT
  Sex: Female
  Weight: 65 kg

DRUGS (8)
  1. ADRIAMYCIN PFS [Suspect]
     Indication: BREAST CANCER
     Dosage: UNK
     Dates: end: 20080819
  2. TAXOTERE [Suspect]
     Indication: BREAST CANCER
     Dosage: UNK
     Route: 042
     Dates: start: 20080819, end: 20080819
  3. CYTOXAN [Suspect]
     Indication: BREAST CANCER
     Dosage: UNK
     Dates: end: 20080819
  4. FEMARA [Concomitant]
     Dosage: UNK
  5. ZOMETA [Concomitant]
     Dosage: UNK
  6. CALCIUM [Concomitant]
     Dosage: UNK
  7. PREVACID [Concomitant]
     Dosage: UNK
  8. VITAMIN D [Concomitant]
     Dosage: UNK

REACTIONS (2)
  - ALOPECIA [None]
  - MUSCULOSKELETAL DISORDER [None]
